FAERS Safety Report 8978257 (Version 1)
Quarter: 2012Q4

REPORT INFORMATION
  Report Type: 
  Country: US (occurrence: US)
  Receive Date: 20121220
  Receipt Date: 20121220
  Transmission Date: 20130627
  Serious: Yes (Other)
  Sender: FDA-Public Use
  Company Number: US-PFIZER INC-2012318899

PATIENT
  Age: 81 Year
  Sex: Female

DRUGS (12)
  1. CELEBREX [Suspect]
     Dosage: 200 mg, Daily
     Route: 048
     Dates: start: 20121130
  2. LEVEMIR FLEXPEN [Concomitant]
     Dosage: 10 units in am for 90 days (100 unit/ml solution)
     Route: 058
     Dates: start: 20121130
  3. CRESTOR [Concomitant]
     Dosage: 20 mg, at bed time for 90 days
     Route: 048
     Dates: start: 20121130
  4. JANUVIA [Concomitant]
     Dosage: 100 mg, Daily (for 90 days)
     Route: 048
     Dates: start: 20121130
  5. CILOSTAZOL [Concomitant]
     Dosage: 100 mg, 2x/day (for 90 days)
     Route: 048
     Dates: start: 20121130
  6. CILOSTAZOL [Concomitant]
     Dosage: 50 mg, 2x/day
  7. LEVOTHYROXINE SODIUM [Concomitant]
     Dosage: 88 ug, Daily
     Route: 048
     Dates: start: 20121130
  8. LAMISIL [Concomitant]
     Dosage: 250 mg, Daily
     Route: 048
     Dates: start: 20120124
  9. LASIX [Concomitant]
     Indication: SWELLING OF LEGS
     Dosage: 40 mg, as needed (Daily)
     Route: 048
     Dates: start: 20120726
  10. METFORMIN HYDROCHLORIDE [Concomitant]
     Dosage: 1000 mg, 2x/day
     Route: 048
     Dates: start: 20120726
  11. NEXIUM [Concomitant]
     Dosage: 40 mg, 1x/day
     Route: 048
     Dates: start: 20120726
  12. ZANTAC [Concomitant]
     Dosage: 150 mg, 2x/day
     Route: 048
     Dates: start: 20110218

REACTIONS (7)
  - Type 2 diabetes mellitus [Unknown]
  - Essential hypertension [Unknown]
  - Diabetic vascular disorder [Unknown]
  - Peripheral vascular disorder [Unknown]
  - Osteoarthritis [Unknown]
  - Gastrooesophageal reflux disease [Unknown]
  - Fungal infection [Unknown]
